FAERS Safety Report 7898870-8 (Version None)
Quarter: 2011Q4

REPORT INFORMATION
  Report Type: 
  Country: None (occurrence: None)
  Receive Date: 20111107
  Receipt Date: 20111101
  Transmission Date: 20120403
  Serious: Yes (Hospitalization)
  Sender: FDA-Public Use
  Company Number: NL-B.I. PHARMACEUTICALS,INC./RIDGEFIELD-2011-NL-00338NL

PATIENT
  Sex: Male
  Weight: 90 kg

DRUGS (1)
  1. MICARDIS [Suspect]
     Indication: HYPERTENSION
     Dosage: 20 MG
     Dates: start: 20090901, end: 20110503

REACTIONS (3)
  - HEPATITIS ACUTE [None]
  - BILE DUCT OBSTRUCTION [None]
  - DYSPEPSIA [None]
